FAERS Safety Report 7260415-3 (Version None)
Quarter: 2011Q1

REPORT INFORMATION
  Report Type: 
  Country: None (occurrence: None)
  Receive Date: 20110130
  Receipt Date: 20101020
  Transmission Date: 20110831
  Serious: No
  Sender: FDA-Public Use
  Company Number: US-ABBOTT-10P-163-0679809-00

PATIENT
  Sex: Female

DRUGS (5)
  1. HUMIRA [Suspect]
  2. ENTOCORT EC [Concomitant]
     Indication: PRODUCT USED FOR UNKNOWN INDICATION
     Dosage: DAILY
  3. HUMIRA [Suspect]
     Dosage: DAY 29
  4. HUMIRA [Suspect]
     Indication: CROHN'S DISEASE
     Dosage: DAY 1
     Route: 058
     Dates: start: 20100923
  5. HUMIRA [Suspect]
     Dosage: DAY 15

REACTIONS (1)
  - FEELING ABNORMAL [None]
